FAERS Safety Report 9769732 (Version 1)
Quarter: 2013Q4

REPORT INFORMATION
  Report Type: Spontaneous
  Country: US (occurrence: None)
  Receive Date: 20131217
  Receipt Date: 20131217
  Transmission Date: 20140711
  Serious: Yes (Hospitalization)
  Sender: FDA-Public Use
  Company Number: None

PATIENT
  Age: 71 Year
  Sex: Female

DRUGS (11)
  1. ALLOPURINOL 100 MG [Suspect]
     Indication: GOUT
     Route: 048
  2. ALBUTEROL INH [Concomitant]
  3. ASA [Concomitant]
  4. COLCHICINE [Concomitant]
  5. DILTIAZEM [Concomitant]
  6. FUROSEMIDE [Concomitant]
  7. METFORMIN [Concomitant]
  8. METOPROLOL [Concomitant]
  9. NEPAFENAC OPHTH [Concomitant]
  10. PRIDISOLONE OPHTH [Concomitant]
  11. RIVAROXABAN TAB [Concomitant]

REACTIONS (3)
  - Tubulointerstitial nephritis [None]
  - Renal failure acute [None]
  - Rash [None]
